FAERS Safety Report 7704888-8 (Version None)
Quarter: 2011Q3

REPORT INFORMATION
  Report Type: 
  Country: None (occurrence: None)
  Receive Date: 20110823
  Receipt Date: 20110818
  Transmission Date: 20111222
  Serious: Yes (Other)
  Sender: FDA-Public Use
  Company Number: US-PFIZER INC-2007035649

PATIENT
  Sex: Female

DRUGS (2)
  1. NEURONTIN [Suspect]
     Indication: MIGRAINE
  2. NEURONTIN [Suspect]
     Indication: HEADACHE
     Dosage: UNK
     Dates: start: 19960101

REACTIONS (2)
  - NIGHTMARE [None]
  - SUICIDAL IDEATION [None]
